FAERS Safety Report 12553223 (Version 1)
Quarter: 2016Q3

REPORT INFORMATION
  Report Type: Spontaneous
  Country: CN (occurrence: CN)
  Receive Date: 20160713
  Receipt Date: 20160713
  Transmission Date: 20161109
  Serious: No
  Sender: FDA-Public Use
  Company Number: CN-JNJFOC-20160703455

PATIENT

DRUGS (1)
  1. DUROGESIC D-TRANS [Suspect]
     Active Substance: FENTANYL
     Indication: PROCEDURAL PAIN
     Route: 062

REACTIONS (8)
  - Contraindication to medical treatment [Unknown]
  - Off label use [Unknown]
  - Vomiting [Unknown]
  - Drug prescribing error [Unknown]
  - Nausea [Unknown]
  - Adverse drug reaction [Unknown]
  - Dermatitis allergic [Unknown]
  - Somnolence [Unknown]
